FAERS Safety Report 6278296-3 (Version None)
Quarter: 2009Q3

REPORT INFORMATION
  Report Type: 
  Country: None (occurrence: None)
  Receive Date: 20090722
  Receipt Date: 20090715
  Transmission Date: 20100115
  Serious: Yes (Other)
  Sender: FDA-Public Use
  Company Number: US-ASTRAZENECA-2009UW19858

PATIENT
  Sex: Male

DRUGS (4)
  1. SEROQUEL [Suspect]
     Route: 048
  2. SEROQUEL [Suspect]
     Route: 048
     Dates: start: 20090101
  3. PAXIL [Concomitant]
  4. KLONOPIN [Concomitant]

REACTIONS (2)
  - ANTINEUTROPHIL CYTOPLASMIC ANTIBODY DECREASED [None]
  - LEUKOPENIA [None]
